FAERS Safety Report 15022179 (Version 2)
Quarter: 2018Q3

REPORT INFORMATION
  Report Type: Spontaneous
  Country: US (occurrence: US)
  Receive Date: 20180618
  Receipt Date: 20180929
  Transmission Date: 20181010
  Serious: Yes (Other)
  Sender: FDA-Public Use
  Company Number: US-SA-2018SA156830

PATIENT
  Age: 58 Year
  Sex: Female
  Weight: 77 kg

DRUGS (12)
  1. FERROUS [IRON] [Concomitant]
     Dosage: UNK
     Dates: start: 2013
  2. TAXOTERE [Suspect]
     Active Substance: DOCETAXEL
     Dosage: 100 UNK
     Route: 042
     Dates: start: 20151202, end: 20151202
  3. BYSTOLIC [Concomitant]
     Active Substance: NEBIVOLOL HYDROCHLORIDE
     Dosage: UNK
     Dates: start: 2013
  4. ZOFRAN [ONDANSETRON] [Concomitant]
  5. ATORVASTATIN [Concomitant]
     Active Substance: ATORVASTATIN
     Dosage: UNK
     Dates: start: 2013
  6. FLUOXETINE [Concomitant]
     Active Substance: FLUOXETINE HYDROCHLORIDE
     Dosage: UNK
     Dates: start: 2006
  7. HERCEPTIN [Concomitant]
     Active Substance: TRASTUZUMAB
  8. LISINOPRIL. [Concomitant]
     Active Substance: LISINOPRIL
     Dosage: UNK
     Dates: start: 2006
  9. LIPITOR [Concomitant]
     Active Substance: ATORVASTATIN CALCIUM
     Dosage: UNK
     Dates: start: 2006
  10. VITAMIN D [COLECALCIFEROL] [Concomitant]
     Dosage: UNK
     Dates: start: 2013
  11. PERJETA [Concomitant]
     Active Substance: PERTUZUMAB
  12. TAXOTERE [Suspect]
     Active Substance: DOCETAXEL
     Indication: BREAST CANCER FEMALE
     Dosage: 100 MG, QOW
     Route: 042
     Dates: start: 20150813, end: 20150813

REACTIONS (3)
  - Alopecia [Recovering/Resolving]
  - Psychological trauma [Unknown]
  - Emotional distress [Unknown]

NARRATIVE: CASE EVENT DATE: 20150820
